FAERS Safety Report 9056262 (Version 1)
Quarter: 2013Q1

REPORT INFORMATION
  Report Type: Spontaneous
  Country: US (occurrence: US)
  Receive Date: 20130205
  Receipt Date: 20130205
  Transmission Date: 20140127
  Serious: Yes (Death)
  Sender: FDA-Public Use
  Company Number: US-ASTRAZENECA-2013SE07414

PATIENT
  Sex: Male

DRUGS (3)
  1. SYNAGIS [Suspect]
     Indication: PREMATURE BABY
     Dosage: 100 MG/ML - 15 MG/KG ONCE A MONTH
     Route: 030
     Dates: start: 20121115
  2. SYNAGIS [Suspect]
     Indication: HYPOSMIA
     Dosage: 100 MG/ML - 15 MG/KG ONCE A MONTH
     Route: 030
     Dates: start: 20121115
  3. SYNAGIS [Suspect]
     Indication: FALLOT^S TETRALOGY
     Dosage: 100 MG/ML - 15 MG/KG ONCE A MONTH
     Route: 030
     Dates: start: 20121115

REACTIONS (1)
  - Death [Fatal]
